FAERS Safety Report 8363167-9 (Version None)
Quarter: 2012Q2

REPORT INFORMATION
  Report Type: 
  Country: None (occurrence: None)
  Receive Date: 20120516
  Receipt Date: 20111102
  Transmission Date: 20120825
  Serious: No
  Sender: FDA-Public Use
  Company Number: US-ALEXION-A201101662

PATIENT
  Sex: Female
  Weight: 60.045 kg

DRUGS (12)
  1. SOLIRIS [Suspect]
     Dosage: 900 MG, Q2W
     Route: 042
     Dates: start: 20111005
  2. PROTONIX [Concomitant]
     Dosage: 40 MG, QD
  3. AMLODIPINE BESYLATE [Concomitant]
     Dosage: 5 MG, QD
  4. CELEXA [Concomitant]
     Dosage: 20 MG, QD
  5. LATANOPROST [Concomitant]
     Dosage: UNK, HS
     Route: 047
  6. TOPROL-XL [Concomitant]
     Dosage: 25 MG, QD
  7. ZETIA [Concomitant]
     Dosage: 10 MG, QD
  8. PREDNISONE [Concomitant]
     Dosage: 2.5 MG, QD
  9. SOLIRIS [Suspect]
     Indication: PAROXYSMAL NOCTURNAL HAEMOGLOBINURIA
     Dosage: 600 MG, QW
     Route: 042
     Dates: start: 20110908
  10. DANAZOL [Concomitant]
     Dosage: 200 MG, BID
  11. SOLIRIS [Suspect]
     Dosage: 900 MG, Q14 DAYS
     Route: 042
  12. TRILIPIX [Concomitant]
     Dosage: 135 MG, QD

REACTIONS (1)
  - WRONG TECHNIQUE IN DRUG USAGE PROCESS [None]
